FAERS Safety Report 16836488 (Version 1)
Quarter: 2019Q3

REPORT INFORMATION
  Report Type: Report from Study
  Country: US (occurrence: US)
  Receive Date: 20190921
  Receipt Date: 20190921
  Transmission Date: 20191005
  Serious: Yes (Hospitalization, Other)
  Sender: FDA-Public Use
  Company Number: US-TAKEDA-2019TUS052709

PATIENT
  Sex: Male

DRUGS (1)
  1. VEDOLIZUMAB [Suspect]
     Active Substance: VEDOLIZUMAB
     Indication: CROHN^S DISEASE
     Dosage: UNK
     Route: 042
     Dates: end: 20190516

REACTIONS (3)
  - Postural tremor [Not Recovered/Not Resolved]
  - Sepsis [Recovered/Resolved]
  - Skin bacterial infection [Not Recovered/Not Resolved]

NARRATIVE: CASE EVENT DATE: 2019
